FAERS Safety Report 14488345 (Version 1)
Quarter: 2018Q1

REPORT INFORMATION
  Report Type: Spontaneous
  Country: NO (occurrence: NO)
  Receive Date: 20180205
  Receipt Date: 20180205
  Transmission Date: 20180509
  Serious: Yes (Life-Threatening, Disabling, Other)
  Sender: FDA-Public Use
  Company Number: NO-PFIZER INC-2018046940

PATIENT
  Age: 21 Year
  Sex: Female
  Weight: 72 kg

DRUGS (2)
  1. LOETTE-28 [Suspect]
     Active Substance: ETHINYL ESTRADIOL\LEVONORGESTREL
     Indication: DYSMENORRHOEA
     Dosage: 1 DF, 1X/DAY, EACH DOSE CONTAINING LEVONORGESTREL 100 MICROGRAMS AND ETHINYLESTRADIOL 20 MICROGRAMS.
     Route: 048
     Dates: start: 20171001, end: 20171104
  2. CATAFLAM /00372302/ [Concomitant]
     Active Substance: DICLOFENAC SODIUM
     Indication: DYSMENORRHOEA
     Dosage: 50 MG, AS NEEDED, UP TO 4 TIMES A DAY.
     Route: 048
     Dates: start: 20170918

REACTIONS (4)
  - Suicidal ideation [Recovering/Resolving]
  - Depression [Recovering/Resolving]
  - Anxiety [Recovering/Resolving]
  - Product use in unapproved indication [Unknown]

NARRATIVE: CASE EVENT DATE: 20171023
